FAERS Safety Report 7212296-1 (Version None)
Quarter: 2011Q1

REPORT INFORMATION
  Report Type: 
  Country: None (occurrence: None)
  Receive Date: 20110106
  Receipt Date: 20110103
  Transmission Date: 20110831
  Serious: Yes (Death)
  Sender: FDA-Public Use
  Company Number: PHHY2011US00557

PATIENT
  Sex: Female

DRUGS (3)
  1. PAIN PATCH [Concomitant]
     Dosage: UNK
  2. DIOVAN [Suspect]
     Dosage: ONC PER DAY
     Route: 048
  3. ANTIHYPERTENSIVE DRUGS [Concomitant]

REACTIONS (1)
  - DEATH [None]
